FAERS Safety Report 21173840 (Version 1)
Quarter: 2022Q3

REPORT INFORMATION
  Report Type: Spontaneous
  Country: US (occurrence: US)
  Receive Date: 20220804
  Receipt Date: 20220804
  Transmission Date: 20221027
  Serious: No
  Sender: FDA-Public Use
  Company Number: US-PERRIGO-22US005572

PATIENT
  Age: 86 Year
  Sex: Male
  Weight: 111.11 kg

DRUGS (4)
  1. LORATADINE [Suspect]
     Active Substance: LORATADINE
     Indication: Rhinorrhoea
     Dosage: 10 MG, BID
     Route: 048
     Dates: start: 202204, end: 202204
  2. LORATADINE [Suspect]
     Active Substance: LORATADINE
     Dosage: 10 MG, QD
     Route: 048
     Dates: start: 202204, end: 202204
  3. METFORMIN [Concomitant]
     Active Substance: METFORMIN HYDROCHLORIDE
     Indication: Hypertension
     Dosage: UNK
     Route: 065
  4. VITAMIN B12 [Concomitant]
     Active Substance: CYANOCOBALAMIN
     Indication: Supplementation therapy
     Dosage: UNK
     Route: 065

REACTIONS (3)
  - Drug ineffective [Unknown]
  - Inappropriate schedule of product administration [Recovered/Resolved]
  - Off label use [Recovered/Resolved]

NARRATIVE: CASE EVENT DATE: 20220401
